FAERS Safety Report 23842982 (Version 1)
Quarter: 2024Q2

REPORT INFORMATION
  Report Type: Spontaneous
  Country: CN (occurrence: CN)
  Receive Date: 20240510
  Receipt Date: 20240510
  Transmission Date: 20240715
  Serious: Yes (Other)
  Sender: FDA-Public Use
  Company Number: CN-009507513-2405CHN001166

PATIENT
  Age: 54 Year
  Sex: Female
  Weight: 51 kg

DRUGS (2)
  1. CILASTATIN SODIUM\IMIPENEM [Suspect]
     Active Substance: CILASTATIN SODIUM\IMIPENEM
     Indication: Peritonitis
     Dosage: 250 MG, QID; FORMULATION: ALSO REPORTED AS POWDER FOR INJECTION
     Route: 033
     Dates: start: 20240319, end: 20240330
  2. LEVOFLOXACIN [Suspect]
     Active Substance: LEVOFLOXACIN
     Indication: Peritonitis
     Dosage: 100 ML, QD
     Route: 033
     Dates: start: 20240319, end: 20240401

REACTIONS (7)
  - Muscle spasticity [Recovering/Resolving]
  - Restless legs syndrome [Recovering/Resolving]
  - Pain in extremity [Recovering/Resolving]
  - Sleep disorder due to a general medical condition [Recovering/Resolving]
  - Bedridden [Recovering/Resolving]
  - Incorrect dose administered [Unknown]
  - Incorrect route of product administration [Unknown]

NARRATIVE: CASE EVENT DATE: 20240301
